FAERS Safety Report 15637428 (Version 1)
Quarter: 2018Q4

REPORT INFORMATION
  Report Type: Spontaneous
  Country: PR (occurrence: PR)
  Receive Date: 20181120
  Receipt Date: 20181120
  Transmission Date: 20190205
  Serious: No
  Sender: FDA-Public Use
  Company Number: PR-JNJFOC-20180531289

PATIENT
  Sex: Female
  Weight: 65.77 kg

DRUGS (5)
  1. IMBRUVICA [Suspect]
     Active Substance: IBRUTINIB
     Indication: EXTRANODAL MARGINAL ZONE B-CELL LYMPHOMA (MALT TYPE)
     Route: 048
  2. KLONOPIN [Concomitant]
     Active Substance: CLONAZEPAM
  3. LORAZEPAM. [Concomitant]
     Active Substance: LORAZEPAM
  4. COZAAR [Concomitant]
     Active Substance: LOSARTAN POTASSIUM
  5. TENORMIN [Concomitant]
     Active Substance: ATENOLOL

REACTIONS (1)
  - Blood cholesterol increased [Unknown]
